FAERS Safety Report 21371073 (Version 1)
Quarter: 2022Q3

REPORT INFORMATION
  Report Type: Report from Study
  Country: CZ (occurrence: CZ)
  Receive Date: 20220923
  Receipt Date: 20220923
  Transmission Date: 20221027
  Serious: Yes (Other)
  Sender: FDA-Public Use
  Company Number: CZ-PFIZER INC-2020149381

PATIENT
  Age: 30 Year
  Sex: Male
  Weight: 130 kg

DRUGS (5)
  1. ABROCITINIB [Suspect]
     Active Substance: ABROCITINIB
     Indication: Dermatitis atopic
     Dosage: 200 MG, DAILY
     Route: 048
     Dates: start: 20191214, end: 20200403
  2. ZYRTEC [Concomitant]
     Active Substance: CETIRIZINE HYDROCHLORIDE
     Indication: Dermatitis atopic
     Dosage: 10 MG, 1X/DAY
     Route: 048
     Dates: start: 2018
  3. LOCOID [Concomitant]
     Active Substance: HYDROCORTISONE BUTYRATE
     Indication: Dermatitis atopic
     Dosage: 0.1 %, 1X/DAY
     Route: 061
     Dates: start: 20190724
  4. AFLODERM [Concomitant]
     Indication: Dermatitis atopic
     Dosage: 0.05 %, 1X/DAY
     Route: 061
     Dates: start: 20191213
  5. INDULONA [Concomitant]
     Indication: Dermatitis atopic
     Dosage: UNK (%), 2X/DAY
     Route: 061
     Dates: start: 20190717

REACTIONS (1)
  - Keratitis bacterial [Recovered/Resolved with Sequelae]

NARRATIVE: CASE EVENT DATE: 20200229
